FAERS Safety Report 8900146 (Version 1)
Quarter: 2012Q4

REPORT INFORMATION
  Report Type: 
  Country: NL (occurrence: NL)
  Receive Date: 20121109
  Receipt Date: 20121109
  Transmission Date: 20130627
  Serious: Yes (Other)
  Sender: FDA-Public Use
  Company Number: PHHY2012NL093118

PATIENT
  Sex: Male
  Weight: 66 kg

DRUGS (8)
  1. ZOMETA [Suspect]
     Indication: PROSTATE CANCER METASTATIC
     Dosage: 4mg/100ml once per 28 days
  2. ZOMETA [Suspect]
     Dosage: 4mg/100ml once per 28 days
     Dates: start: 20120515
  3. ZOMETA [Suspect]
     Dosage: 4mg/100ml once per 28 days
     Dates: start: 20120904
  4. ZOMETA [Suspect]
     Dosage: 4mg/100ml once per 28 days
     Dates: start: 20121001, end: 20121017
  5. ZOMETA [Suspect]
     Dosage: 4mg/100ml once per 28 days
     Dates: end: 20121017
  6. BETASERC [Concomitant]
     Dosage: UNK UKN, UNK
  7. CINNARIZINE [Concomitant]
     Dosage: UNK UKN, UNK
  8. DIAZEPAM [Concomitant]
     Dosage: UNK UKN, UNK

REACTIONS (3)
  - Lip swelling [Recovering/Resolving]
  - Gingival inflammation [Recovering/Resolving]
  - Gingival pain [Unknown]
